FAERS Safety Report 10251221 (Version 1)
Quarter: 2014Q2

REPORT INFORMATION
  Report Type: Spontaneous
  Country: PT (occurrence: PT)
  Receive Date: 20140620
  Receipt Date: 20140620
  Transmission Date: 20141212
  Serious: Yes (Hospitalization)
  Sender: FDA-Public Use
  Company Number: PT-009507513-1406PRT007590

PATIENT
  Age: 51 Year
  Sex: Male

DRUGS (2)
  1. LOSARTAN POTASSIUM [Suspect]
     Indication: BLOOD PRESSURE INADEQUATELY CONTROLLED
     Dosage: UNK
     Route: 048
  2. LOSARTAN POTASSIUM [Suspect]
     Dosage: UNK
     Route: 048

REACTIONS (6)
  - Dyspnoea [Unknown]
  - Hypoxia [Unknown]
  - Syncope [Unknown]
  - Anaphylactic reaction [Unknown]
  - Hypotension [Unknown]
  - Chills [Recovered/Resolved]
